FAERS Safety Report 5823056-8 (Version None)
Quarter: 2008Q3

REPORT INFORMATION
  Report Type: 
  Country: None (occurrence: None)
  Receive Date: 20080725
  Receipt Date: 20070820
  Transmission Date: 20090109
  Serious: No
  Sender: FDA-Public Use
  Company Number: US-AMGEN-KDL230338

PATIENT
  Sex: Male
  Weight: 83.1 kg

DRUGS (6)
  1. PROCRIT [Suspect]
     Indication: ANAEMIA OF MALIGNANT DISEASE
     Route: 058
     Dates: start: 20070525, end: 20070601
  2. ASPIRIN [Concomitant]
  3. LEXAPRO [Concomitant]
  4. LIPITOR [Concomitant]
  5. TOPROL-XL [Concomitant]
  6. DIOVAN HCT [Concomitant]

REACTIONS (2)
  - LIP SWELLING [None]
  - THROAT IRRITATION [None]
